FAERS Safety Report 23775353 (Version 2)
Quarter: 2024Q2

REPORT INFORMATION
  Report Type: Spontaneous
  Country: BR (occurrence: BR)
  Receive Date: 20240423
  Receipt Date: 20240531
  Transmission Date: 20240716
  Serious: Yes (Other)
  Sender: FDA-Public Use
  Company Number: BR-ELI_LILLY_AND_COMPANY-BR202404012196

PATIENT
  Age: 80 Year
  Sex: Male

DRUGS (1)
  1. TALTZ [Suspect]
     Active Substance: IXEKIZUMAB
     Indication: Erythrodermic psoriasis
     Dosage: UNK UNK, UNKNOWN
     Route: 058

REACTIONS (2)
  - Neoplasm malignant [Unknown]
  - Emphysema [Unknown]
